FAERS Safety Report 18228248 (Version 2)
Quarter: 2021Q1

REPORT INFORMATION
  Report Type: Report from Study
  Country: None (occurrence: IL)
  Receive Date: 20200903
  Receipt Date: 20210326
  Transmission Date: 20210419
  Serious: Yes (Death)
  Sender: FDA-Public Use
  Company Number: IL-ABBVIE-20K-082-3529698-00

PATIENT
  Sex: Male
  Weight: 72 kg

DRUGS (8)
  1. PAMID [Concomitant]
     Indication: HYPERTENSION
     Dates: start: 2001
  2. VENCLEXTA [Suspect]
     Active Substance: VENETOCLAX
     Route: 048
     Dates: start: 20200803, end: 20200809
  3. EXFORGE [Concomitant]
     Active Substance: AMLODIPINE BESYLATE\VALSARTAN
     Indication: HYPERTENSION
     Dates: start: 2001
  4. FAMOTIDIN [Concomitant]
     Active Substance: FAMOTIDINE
     Indication: ULCER
     Dates: start: 2016
  5. LOPRESOR [Concomitant]
     Active Substance: METOPROLOL
     Indication: HYPERTENSION
     Dates: start: 2001
  6. MIRO [Concomitant]
     Indication: DEPRESSION
     Dates: start: 2001
  7. SIMVACOR [Concomitant]
     Active Substance: SIMVASTATIN
     Indication: HYPERLIPIDAEMIA
     Dates: start: 2013
  8. VENCLEXTA [Suspect]
     Active Substance: VENETOCLAX
     Indication: CHRONIC LYMPHOCYTIC LEUKAEMIA
     Route: 048
     Dates: start: 201806, end: 201811

REACTIONS (2)
  - Thrombocytopenia [Unknown]
  - Pneumonia [Fatal]

NARRATIVE: CASE EVENT DATE: 20200808
